FAERS Safety Report 10993227 (Version 1)
Quarter: 2015Q2

REPORT INFORMATION
  Report Type: Spontaneous
  Country: US (occurrence: US)
  Receive Date: 20150407
  Receipt Date: 20150407
  Transmission Date: 20150821
  Serious: Yes (Hospitalization)
  Sender: FDA-Public Use
  Company Number: US-BEH-2015049993

PATIENT
  Age: 11 Year
  Sex: Female
  Weight: 55 kg

DRUGS (30)
  1. NEXIUM [Concomitant]
     Active Substance: ESOMEPRAZOLE MAGNESIUM
  2. VANICREAM [Concomitant]
     Active Substance: TITANIUM DIOXIDE\ZINC OXIDE
  3. PRIVIGEN [Suspect]
     Active Substance: HUMAN IMMUNOGLOBULIN G
     Indication: DERMATOMYOSITIS
     Route: 042
  4. EPIPEN [Concomitant]
     Active Substance: EPINEPHRINE
  5. SOLU-MEDROL [Concomitant]
     Active Substance: METHYLPREDNISOLONE SODIUM SUCCINATE
  6. DEXTROSE. [Concomitant]
     Active Substance: DEXTROSE
  7. NYSTATIN. [Concomitant]
     Active Substance: NYSTATIN
  8. ZOFRAN [Concomitant]
     Active Substance: ONDANSETRON HYDROCHLORIDE
  9. VALIUM [Concomitant]
     Active Substance: DIAZEPAM
  10. ACETAMINOPHEN. [Concomitant]
     Active Substance: ACETAMINOPHEN
  11. DIPHENHYDRAMINE [Concomitant]
     Active Substance: DIPHENHYDRAMINE
  12. METHOTREXATE [Concomitant]
     Active Substance: METHOTREXATE
  13. DEXTROSE. [Concomitant]
     Active Substance: DEXTROSE
  14. DIFLUCAN [Concomitant]
     Active Substance: FLUCONAZOLE
  15. REMICADE [Concomitant]
     Active Substance: INFLIXIMAB
  16. PREDNISONE. [Concomitant]
     Active Substance: PREDNISONE
  17. PRIVIGEN [Suspect]
     Active Substance: HUMAN IMMUNOGLOBULIN G
     Indication: DERMATOMYOSITIS
     Route: 042
  18. HEPARIN [Concomitant]
     Active Substance: HEPARIN SODIUM
  19. HYDROXYZINE [Concomitant]
     Active Substance: HYDROXYZINE\HYDROXYZINE HYDROCHLORIDE
  20. PLAQUENIL [Concomitant]
     Active Substance: HYDROXYCHLOROQUINE SULFATE
  21. PRIVIGEN [Suspect]
     Active Substance: HUMAN IMMUNOGLOBULIN G
     Indication: DERMATOMYOSITIS
     Route: 042
  22. SODIUM CHLORIDE. [Concomitant]
     Active Substance: SODIUM CHLORIDE
  23. LMX [Concomitant]
     Active Substance: LIDOCAINE
  24. TRAMADOL [Concomitant]
     Active Substance: TRAMADOL
  25. NORMAL SALINE [Concomitant]
     Active Substance: SODIUM CHLORIDE
  26. FOLIC ACID. [Concomitant]
     Active Substance: FOLIC ACID
  27. PREVACID [Concomitant]
     Active Substance: LANSOPRAZOLE
  28. AMMONIUM LACTATE. [Concomitant]
     Active Substance: AMMONIUM LACTATE
  29. PRAMOXINE [Concomitant]
     Active Substance: PRAMOXINE
  30. HYDROCORTISONE-PRAMOXINE [Concomitant]

REACTIONS (1)
  - Deep vein thrombosis [Unknown]

NARRATIVE: CASE EVENT DATE: 20150321
